FAERS Safety Report 12320014 (Version 1)
Quarter: 2016Q2

REPORT INFORMATION
  Report Type: Spontaneous
  Country: US (occurrence: US)
  Receive Date: 20160429
  Receipt Date: 20160429
  Transmission Date: 20160815
  Serious: No
  Sender: FDA-Public Use
  Company Number: US-ROCHE-1633586

PATIENT
  Sex: Female
  Weight: 99.88 kg

DRUGS (2)
  1. ESBRIET [Suspect]
     Active Substance: PIRFENIDONE
     Indication: IDIOPATHIC PULMONARY FIBROSIS
     Route: 048
     Dates: start: 20150311
  2. AMOXYCILLIN [Concomitant]
     Active Substance: AMOXICILLIN

REACTIONS (1)
  - Sunburn [Unknown]
